FAERS Safety Report 6979596-1 (Version None)
Quarter: 2010Q3

REPORT INFORMATION
  Report Type: 
  Country: None (occurrence: None)
  Receive Date: 20100910
  Receipt Date: 20100910
  Transmission Date: 20110219
  Serious: Yes (Hospitalization)
  Sender: FDA-Public Use
  Company Number: None

PATIENT
  Sex: Female
  Weight: 48.5 kg

DRUGS (2)
  1. CARBOPLATIN [Suspect]
     Dosage: 399 MG
     Dates: end: 20100823
  2. ETOPOSIDE [Suspect]
     Dosage: 333 MG
     Dates: end: 20100825

REACTIONS (1)
  - FEEDING TUBE COMPLICATION [None]
